FAERS Safety Report 6549097-3 (Version None)
Quarter: 2010Q1

REPORT INFORMATION
  Report Type: 
  Country: None (occurrence: None)
  Receive Date: 20100125
  Receipt Date: 20100120
  Transmission Date: 20100710
  Serious: Yes (Death)
  Sender: FDA-Public Use
  Company Number: US-ROCHE-680701

PATIENT
  Sex: Male
  Weight: 65.8 kg

DRUGS (1)
  1. CAPECITABINE [Suspect]
     Indication: GASTROINTESTINAL CARCINOMA
     Dosage: ROUTE: BY MOUTH
     Route: 048
     Dates: start: 20090422, end: 20091123

REACTIONS (1)
  - DEATH [None]
